FAERS Safety Report 24081247 (Version 1)
Quarter: 2024Q3

REPORT INFORMATION
  Report Type: Spontaneous
  Country: MX (occurrence: MX)
  Receive Date: 20240711
  Receipt Date: 20240711
  Transmission Date: 20241017
  Serious: Yes (Death, Hospitalization)
  Sender: JOHNSON AND JOHNSON
  Company Number: MX-BAYER-2024A099197

PATIENT
  Age: 88 Year
  Sex: Female
  Weight: 52 kg

DRUGS (1)
  1. XARELTO [Suspect]
     Active Substance: RIVAROXABAN
     Indication: Product used for unknown indication
     Dosage: 15 MG, QD?THERAPY START DATE: /JUL/2024
     Route: 048

REACTIONS (3)
  - Myocardial infarction [Fatal]
  - Fall [Fatal]
  - Hip fracture [Fatal]

NARRATIVE: CASE EVENT DATE: 20240703
